FAERS Safety Report 25493342 (Version 1)
Quarter: 2025Q2

REPORT INFORMATION
  Report Type: Spontaneous
  Country: BR (occurrence: BR)
  Receive Date: 20250630
  Receipt Date: 20250630
  Transmission Date: 20250716
  Serious: Yes (Death, Hospitalization, Other)
  Sender: ASTELLAS
  Company Number: BR-ASTELLAS-2022US013658

PATIENT
  Age: 56 Year
  Sex: Male

DRUGS (10)
  1. MYCAMINE [Suspect]
     Active Substance: MICAFUNGIN SODIUM
     Indication: Sepsis
     Route: 042
     Dates: start: 20220120, end: 20220222
  2. MYCAMINE [Suspect]
     Active Substance: MICAFUNGIN SODIUM
     Indication: Liver disorder
  3. VANCOMYCIN [Suspect]
     Active Substance: VANCOMYCIN
     Indication: Product used for unknown indication
     Route: 065
     Dates: start: 20220107, end: 20220202
  4. VANCOMYCIN [Suspect]
     Active Substance: VANCOMYCIN
     Indication: Sepsis
  5. MEROPENEM [Concomitant]
     Active Substance: MEROPENEM
     Indication: Product used for unknown indication
     Route: 065
     Dates: start: 20220107, end: 20220221
  6. MEROPENEM [Concomitant]
     Active Substance: MEROPENEM
     Indication: Sepsis
  7. POLYMYXIN B [Concomitant]
     Active Substance: POLYMYXIN B
     Indication: Product used for unknown indication
     Route: 065
     Dates: start: 20220117, end: 20220323
  8. POLYMYXIN B [Concomitant]
     Active Substance: POLYMYXIN B
     Indication: Sepsis
  9. DAPTOMYCIN [Concomitant]
     Active Substance: DAPTOMYCIN
     Indication: Product used for unknown indication
     Route: 065
     Dates: start: 20220202, end: 20220218
  10. DAPTOMYCIN [Concomitant]
     Active Substance: DAPTOMYCIN
     Indication: Sepsis

REACTIONS (8)
  - Peritonitis [Fatal]
  - Sepsis [Fatal]
  - Gastrointestinal disorder [Fatal]
  - Hepatic cirrhosis [Unknown]
  - Renal impairment [Unknown]
  - Drug eruption [Unknown]
  - Rash vesicular [Unknown]
  - Off label use [Unknown]

NARRATIVE: CASE EVENT DATE: 20220202
